FAERS Safety Report 5242448-1 (Version None)
Quarter: 2007Q1

REPORT INFORMATION
  Report Type: 
  Country: None (occurrence: None)
  Receive Date: 20070214
  Receipt Date: 20070203
  Transmission Date: 20070707
  Serious: Yes (Hospitalization)
  Sender: FDA-Public Use
  Company Number: 2007SP002279

PATIENT
  Age: 53 Year
  Sex: Female

DRUGS (5)
  1. PEG-INTRON [Suspect]
     Indication: HEPATITIS C
     Dosage: SC
     Route: 058
     Dates: start: 20060623
  2. RIBAVIRIN [Suspect]
     Indication: HEPATITIS C
     Dosage: PO
     Route: 048
     Dates: start: 20060623
  3. MICROGESTIN FE 1/20 [Concomitant]
  4. ROBAXIN [Concomitant]
  5. SERAX [Concomitant]

REACTIONS (1)
  - PULMONARY EMBOLISM [None]
